FAERS Safety Report 15433553 (Version 1)
Quarter: 2018Q3

REPORT INFORMATION
  Report Type: Spontaneous
  Country: US (occurrence: US)
  Receive Date: 20180921
  Receipt Date: 20180921
  Transmission Date: 20181010
  Serious: No
  Sender: FDA-Public Use
  Company Number: None

PATIENT
  Age: 53 Year
  Sex: Female
  Weight: 64.8 kg

DRUGS (4)
  1. VENLAFAXINE [Suspect]
     Active Substance: VENLAFAXINE HYDROCHLORIDE
     Indication: HOT FLUSH
     Dosage: ?          QUANTITY:1 CAPSULE(S);?
     Route: 048
  2. KLONOPIN [Concomitant]
     Active Substance: CLONAZEPAM
  3. SUPPLEMENTS [Concomitant]
     Active Substance: UNSPECIFIED INGREDIENT
  4. VENLAFAXINE [Suspect]
     Active Substance: VENLAFAXINE HYDROCHLORIDE
     Indication: MIGRAINE
     Dosage: ?          QUANTITY:1 CAPSULE(S);?
     Route: 048

REACTIONS (6)
  - Anxiety [None]
  - Insomnia [None]
  - Eye pain [None]
  - Dementia [None]
  - Palpitations [None]
  - Asthenia [None]

NARRATIVE: CASE EVENT DATE: 20180715
